FAERS Safety Report 5371132-9 (Version None)
Quarter: 2007Q2

REPORT INFORMATION
  Report Type: 
  Country: None (occurrence: None)
  Receive Date: 20070626
  Receipt Date: 20070618
  Transmission Date: 20071010
  Serious: Yes (Hospitalization)
  Sender: FDA-Public Use
  Company Number: US-MERCK-0706USA03092

PATIENT
  Age: 70 Year
  Sex: Female

DRUGS (3)
  1. VYTORIN [Suspect]
     Indication: BLOOD CHOLESTEROL INCREASED
     Route: 048
     Dates: start: 20070430, end: 20070530
  2. [THERAPY UNSPECIFIED] [Concomitant]
     Route: 065
  3. ASPIRIN [Concomitant]
     Route: 065

REACTIONS (2)
  - CARDIAC DISORDER [None]
  - MYALGIA [None]
